FAERS Safety Report 17507556 (Version 8)
Quarter: 2022Q1

REPORT INFORMATION
  Report Type: Spontaneous
  Country: FR (occurrence: FR)
  Receive Date: 20200306
  Receipt Date: 20220201
  Transmission Date: 20220423
  Serious: Yes (Other)
  Sender: FDA-Public Use
  Company Number: FR-PFIZER INC-2020068217

PATIENT
  Age: 61 Year
  Sex: Male
  Weight: 94 kg

DRUGS (5)
  1. GEMCITABINE [Suspect]
     Active Substance: GEMCITABINE
     Indication: Hepatocellular carcinoma
     Dosage: DOSE: 1 G/M2 ON DAY 1; CYCLICAL THERAPY (GEMOX REGIMEN)
     Route: 065
     Dates: start: 2010
  2. GEMCITABINE [Suspect]
     Active Substance: GEMCITABINE
     Dosage: 1000 MILLIGRAM/SQ. METER, ADMINISTERED ON DAY 1 OF THE CYCLE
     Route: 065
     Dates: start: 2010
  3. OXALIPLATIN [Suspect]
     Active Substance: OXALIPLATIN
     Indication: Hepatocellular carcinoma
     Dosage: ADMINISTERED ON DAY 2; CYCLICAL THERAPY (GEMOX REGIMEN)
     Route: 065
     Dates: start: 2010, end: 2010
  4. SORAFENIB [Suspect]
     Active Substance: SORAFENIB
     Indication: Hepatocellular carcinoma
     Dosage: 800 MILLIGRAM, ONCE A DAY (ADMINISTERED ALONGSIDE THE GEMOX REGIMEN)
     Route: 065
     Dates: start: 2010, end: 2010
  5. SORAFENIB [Suspect]
     Active Substance: SORAFENIB
     Dosage: 400 MILLIGRAM, ONCE A DAY
     Route: 065
     Dates: start: 2010, end: 2010

REACTIONS (6)
  - Neurotoxicity [Not Recovered/Not Resolved]
  - Diarrhoea [Unknown]
  - Thrombocytopenia [Unknown]
  - Asthenia [Unknown]
  - Product use in unapproved indication [Unknown]
  - Off label use [Unknown]

NARRATIVE: CASE EVENT DATE: 20100101
